FAERS Safety Report 9729129 (Version 1)
Quarter: 2013Q4

REPORT INFORMATION
  Report Type: Spontaneous
  Country: US (occurrence: US)
  Receive Date: 20131204
  Receipt Date: 20131204
  Transmission Date: 20140711
  Serious: No
  Sender: FDA-Public Use
  Company Number: US-ENDO PHARMACEUTICALS INC.-ZOLP20120080

PATIENT
  Age: 59 Year
  Sex: Female

DRUGS (2)
  1. ZOLPIDEM TARTRATE TABLETS 10MG [Suspect]
     Indication: PRODUCT USED FOR UNKNOWN INDICATION
     Dosage: 10 MG
     Route: 048
  2. IMITREX [Concomitant]
     Indication: MIGRAINE
     Dosage: UNK
     Route: 048

REACTIONS (2)
  - Fibromyalgia [Not Recovered/Not Resolved]
  - Drug effect decreased [Not Recovered/Not Resolved]
